FAERS Safety Report 10070021 (Version 1)
Quarter: 2014Q2

REPORT INFORMATION
  Report Type: Spontaneous
  Country: TN (occurrence: TN)
  Receive Date: 20140410
  Receipt Date: 20140410
  Transmission Date: 20141212
  Serious: Yes (Hospitalization)
  Sender: FDA-Public Use
  Company Number: TN-ROCHE-1378341

PATIENT
  Age: 60 Year
  Sex: Female

DRUGS (3)
  1. PEG-INTERFERON ALFA 2A [Suspect]
     Indication: CHRONIC HEPATITIS C
     Route: 058
  2. RIBAVIRIN [Suspect]
     Indication: CHRONIC HEPATITIS C
     Dosage: DAILY
     Route: 048
  3. RIBAVIRIN [Suspect]
     Dosage: DOSE REDUCED
     Route: 048

REACTIONS (1)
  - Autoimmune haemolytic anaemia [Recovered/Resolved]
